FAERS Safety Report 4744851-2 (Version None)
Quarter: 2005Q3

REPORT INFORMATION
  Report Type: 
  Country: None (occurrence: None)
  Receive Date: 20050815
  Receipt Date: 20050727
  Transmission Date: 20060218
  Serious: Yes (Hospitalization)
  Sender: FDA-Public Use
  Company Number: J200502441

PATIENT
  Age: 56 Year
  Sex: Female

DRUGS (3)
  1. SAWACILLIN [Suspect]
     Indication: TOOTHACHE
     Route: 048
     Dates: start: 20050702, end: 20050707
  2. IRON PREPARATION [Suspect]
     Dosage: 305MG PER DAY
     Route: 048
     Dates: start: 20050601, end: 20050715
  3. CALCITRIOL [Suspect]
     Indication: OSTEOPOROSIS
     Route: 048
     Dates: end: 20050715

REACTIONS (6)
  - ABDOMINAL PAIN UPPER [None]
  - BACK PAIN [None]
  - JAUNDICE [None]
  - LIVER DISORDER [None]
  - LIVER FUNCTION TEST ABNORMAL [None]
  - VOMITING [None]
